FAERS Safety Report 25548699 (Version 1)
Quarter: 2025Q3

REPORT INFORMATION
  Report Type: Spontaneous
  Country: CH (occurrence: CH)
  Receive Date: 20250714
  Receipt Date: 20250714
  Transmission Date: 20251021
  Serious: Yes (Hospitalization)
  Sender: MYLAN
  Company Number: None

PATIENT
  Age: 84 Year
  Sex: Female
  Weight: 50 kg

DRUGS (13)
  1. ATORVASTATIN CALCIUM [Suspect]
     Active Substance: ATORVASTATIN CALCIUM
     Indication: Product used for unknown indication
     Dosage: 40 MILLIGRAM, AM (40 MG ORALLY 1 IN THE MORNING)
     Dates: end: 20250407
  2. ATORVASTATIN CALCIUM [Suspect]
     Active Substance: ATORVASTATIN CALCIUM
     Dosage: 40 MILLIGRAM, AM (40 MG ORALLY 1 IN THE MORNING)
     Dates: start: 202504, end: 20250409
  3. MEKINIST [Suspect]
     Active Substance: TRAMETINIB DIMETHYL SULFOXIDE
     Indication: Metastatic malignant melanoma
     Dosage: 2 MILLIGRAM, AM (2 MG ORALLY 1 IN THE MORNING)
     Dates: start: 20250205, end: 20250408
  4. MEKINIST [Suspect]
     Active Substance: TRAMETINIB DIMETHYL SULFOXIDE
     Dosage: 0.5 MILLIGRAM, BID (0.5 MG ORALLY 1 IN THE MORNING AND AT BEDTIME)
     Dates: start: 20250417, end: 20250611
  5. MEKINIST [Suspect]
     Active Substance: TRAMETINIB DIMETHYL SULFOXIDE
     Dosage: 0.5 MILLIGRAM, BID (0.5 MG ORALLY 1 IN THE MORNING AND AT BEDTIME)
     Dates: start: 20250622
  6. AMLODIPINE\VALSARTAN [Concomitant]
     Active Substance: AMLODIPINE\VALSARTAN
     Dosage: 1 DOSAGE FORM, AM (5 MG/160 MG ORALLY, 1 IN THE MORNING)
  7. DAPAGLIFLOZIN [Concomitant]
     Active Substance: DAPAGLIFLOZIN
     Dosage: 10 MILLIGRAM, AM (10 MG ORALLY 1 IN THE MORNING)
  8. FOLIC ACID [Concomitant]
     Active Substance: FOLIC ACID
     Dosage: 5 MILLIGRAM, AM (5 MG ORALLY 1 IN THE MORNING)
  9. ASPIRIN [Concomitant]
     Active Substance: ASPIRIN
     Dosage: 100 MILLIGRAM, AM (100 MG ORALLY 1 IN THE MORNING)
  10. EUTHYROX [Concomitant]
     Active Substance: LEVOTHYROXINE SODIUM
     Dosage: 1.5 DOSAGE FORM, AM (25 ?G ORALLY, 1.5 TAB. IN THE MORNING)
  11. Bisoprolol mepha [Concomitant]
     Dosage: 0.5 DOSAGE FORM, AM (2.5 MG ORALLY 0.5 TAB IN THE MORNING)
  12. CALCIUM\CHOLECALCIFEROL [Concomitant]
     Active Substance: CALCIUM\CHOLECALCIFEROL
     Dosage: 1 DOSAGE FORM, AM (500 MG/800 IU 1 IN THE MORNING)
  13. TORSEMIDE [Concomitant]
     Active Substance: TORSEMIDE
     Dosage: 5 MILLIGRAM, AM (5 MG ORALLY 1 IN THE MORNING )

REACTIONS (2)
  - Myocardial injury [Recovering/Resolving]
  - Blood creatine phosphokinase increased [Recovering/Resolving]

NARRATIVE: CASE EVENT DATE: 20250408
